FAERS Safety Report 9325791 (Version 1)
Quarter: 2013Q2

REPORT INFORMATION
  Report Type: Spontaneous
  Country: IT (occurrence: IT)
  Receive Date: 20130604
  Receipt Date: 20130604
  Transmission Date: 20140414
  Serious: Yes (Death)
  Sender: FDA-Public Use
  Company Number: IT-ROCHE-1231757

PATIENT
  Age: 65 Year
  Sex: Male

DRUGS (6)
  1. PEGASYS [Suspect]
     Indication: CHRONIC HEPATITIS
     Route: 058
     Dates: start: 20130325, end: 20130422
  2. COPEGUS [Suspect]
     Indication: CHRONIC HEPATITIS
     Route: 048
     Dates: start: 20130325, end: 20130426
  3. INCIVO [Suspect]
     Indication: CHRONIC HEPATITIS
     Route: 065
     Dates: start: 20130325, end: 20130426
  4. PLASIL [Concomitant]
     Indication: PROPHYLAXIS OF NAUSEA AND VOMITING
     Route: 048
  5. PLASIL [Concomitant]
     Indication: PROPHYLAXIS OF NAUSEA AND VOMITING
  6. TILADE [Concomitant]
     Indication: COUGH
     Route: 055

REACTIONS (1)
  - Respiratory failure [Fatal]
